FAERS Safety Report 7571882-X (Version None)
Quarter: 2011Q2

REPORT INFORMATION
  Report Type: 
  Country: None (occurrence: None)
  Receive Date: 20110624
  Receipt Date: 20100623
  Transmission Date: 20111010
  Serious: No
  Sender: FDA-Public Use
  Company Number: A0866768A

PATIENT
  Age: 48 Year
  Sex: Female

DRUGS (5)
  1. VERAMYST [Suspect]
     Dosage: 2SPR IN THE MORNING
     Route: 045
     Dates: start: 20100619, end: 20100623
  2. PRILOSEC [Concomitant]
  3. NAPROXEN (ALEVE) [Concomitant]
  4. ADVAIR DISKUS 100/50 [Suspect]
     Indication: ASTHMA
     Dosage: 1PUFF PER DAY
     Route: 055
     Dates: start: 20070101
  5. ADVAIR DISKUS 100/50 [Concomitant]

REACTIONS (1)
  - BACK PAIN [None]
